FAERS Safety Report 9959997 (Version 1)
Quarter: 2014Q1

REPORT INFORMATION
  Report Type: Report from Study
  Country: US (occurrence: US)
  Receive Date: 20140305
  Receipt Date: 20140305
  Transmission Date: 20141002
  Serious: No
  Sender: FDA-Public Use
  Company Number: US-ABBVIE-13P-163-1103108-00

PATIENT
  Age: 53 Year
  Sex: Male
  Weight: 95.34 kg

DRUGS (4)
  1. HUMIRA [Suspect]
     Indication: CROHN^S DISEASE
     Dates: start: 201212
  2. PREDNISONE [Suspect]
     Indication: CROHN^S DISEASE
     Dosage: DURATION: OVER 1 YEAR
     Dates: start: 2012, end: 201304
  3. LISINOPRIL [Concomitant]
     Indication: HYPERTENSION
  4. FERROUS SULFATE [Concomitant]
     Indication: PRODUCT USED FOR UNKNOWN INDICATION

REACTIONS (4)
  - Acne [Not Recovered/Not Resolved]
  - Rash [Recovering/Resolving]
  - Erythema [Not Recovered/Not Resolved]
  - Multiple allergies [Unknown]
